FAERS Safety Report 4400741-6 (Version None)
Quarter: 2004Q3

REPORT INFORMATION
  Report Type: 
  Country: None (occurrence: None)
  Receive Date: 20040707
  Receipt Date: 20040707
  Transmission Date: 20050211
  Serious: Yes (Death)
  Sender: FDA-Public Use
  Company Number: None

PATIENT
  Age: 71 Year
  Sex: Female
  Weight: 74.8435 kg

DRUGS (2)
  1. EFFEXOR [Suspect]
     Indication: DEPRESSION
     Dosage: ONCE IN THE EVENING
     Dates: start: 20040106, end: 20040507
  2. REMERON [Suspect]
     Indication: DEPRESSION
     Dosage: ONCE IN THE EVENING
     Dates: start: 20040415, end: 20040507

REACTIONS (6)
  - COMPLETED SUICIDE [None]
  - DEPRESSION [None]
  - DROWNING [None]
  - ENERGY INCREASED [None]
  - INCREASED APPETITE [None]
  - WEIGHT DECREASED [None]
